FAERS Safety Report 4854033-1 (Version None)
Quarter: 2005Q4

REPORT INFORMATION
  Report Type: 
  Country: None (occurrence: None)
  Receive Date: 20051213
  Receipt Date: 20051130
  Transmission Date: 20060501
  Serious: Yes (Hospitalization)
  Sender: FDA-Public Use
  Company Number: 219941

PATIENT
  Sex: Male

DRUGS (1)
  1. RAPTIVA [Suspect]
     Indication: PSORIASIS

REACTIONS (4)
  - FATIGUE [None]
  - HYPERHIDROSIS [None]
  - LETHARGY [None]
  - WHITE BLOOD CELL COUNT INCREASED [None]
